FAERS Safety Report 21974887 (Version 1)
Quarter: 2023Q1

REPORT INFORMATION
  Report Type: Report from Study
  Country: US (occurrence: US)
  Receive Date: 20230209
  Receipt Date: 20230209
  Transmission Date: 20230417
  Serious: No
  Sender: FDA-Public Use
  Company Number: US-INCYTE CORPORATION-2023IN000124

PATIENT

DRUGS (1)
  1. JAKAFI [Suspect]
     Active Substance: RUXOLITINIB
     Indication: Polycythaemia vera
     Dosage: 7.5 MILLIGRAM (15MG/ONE-HALF TABLET/0.5 TABLETS), BID
     Route: 048
     Dates: start: 20220429

REACTIONS (1)
  - Wrong technique in product usage process [Unknown]
